FAERS Safety Report 17031553 (Version 1)
Quarter: 2019Q4

REPORT INFORMATION
  Report Type: Spontaneous
  Country: SE (occurrence: SE)
  Receive Date: 20191114
  Receipt Date: 20191114
  Transmission Date: 20200122
  Serious: Yes (Hospitalization)
  Sender: FDA-Public Use
  Company Number: SE-ASTRAZENECA-2019SF58860

PATIENT
  Age: 30 Year
  Sex: Female

DRUGS (5)
  1. IMOVANE [Suspect]
     Active Substance: ZOPICLONE
     Dosage: 150.0MG ONCE/SINGLE ADMINISTRATION
     Route: 065
     Dates: start: 20191018, end: 20191018
  2. IKTORIVIL [Suspect]
     Active Substance: CLONAZEPAM
     Dosage: AMOUNT OF 10-15
     Route: 065
     Dates: start: 20191018, end: 20191018
  3. PARACETAMOL [Suspect]
     Active Substance: ACETAMINOPHEN
     Dosage: 10000.0MG ONCE/SINGLE ADMINISTRATION
     Route: 065
     Dates: start: 20191018, end: 20191018
  4. QUETIAPINE. [Suspect]
     Active Substance: QUETIAPINE
     Dosage: 500.0MG ONCE/SINGLE ADMINISTRATION
     Route: 048
     Dates: start: 20191018, end: 20191018
  5. THERALEN [Suspect]
     Active Substance: TRIMEPRAZINE
     Dosage: AMOUNT OF 50-60
     Route: 065
     Dates: start: 20191018, end: 20191018

REACTIONS (4)
  - Intentional overdose [Unknown]
  - Toxicity to various agents [Unknown]
  - Agitation [Unknown]
  - Suicidal ideation [Unknown]

NARRATIVE: CASE EVENT DATE: 20191018
